FAERS Safety Report 8439309-3 (Version None)
Quarter: 2012Q2

REPORT INFORMATION
  Report Type: 
  Country: None (occurrence: None)
  Receive Date: 20120615
  Receipt Date: 20120613
  Transmission Date: 20120825
  Serious: Yes (Death)
  Sender: FDA-Public Use
  Company Number: PHEH2012US008459

PATIENT
  Sex: Male
  Weight: 86 kg

DRUGS (1)
  1. GLEEVEC [Suspect]
     Indication: ENDOCRINE NEOPLASM MALIGNANT
     Dosage: 400 MG, QD
     Route: 048
     Dates: start: 20120201

REACTIONS (1)
  - COMPLETED SUICIDE [None]
